FAERS Safety Report 25239828 (Version 1)
Quarter: 2025Q2

REPORT INFORMATION
  Report Type: Spontaneous
  Country: US (occurrence: None)
  Receive Date: 20250424
  Receipt Date: 20250424
  Transmission Date: 20250716
  Serious: Yes (Disabling, Other)
  Sender: FDA-CTU
  Company Number: None

PATIENT
  Age: 55 Year
  Sex: Male
  Weight: 87.75 kg

DRUGS (1)
  1. DULOXETINE [Suspect]
     Active Substance: DULOXETINE
     Route: 048

REACTIONS (3)
  - Cognitive disorder [None]
  - Hypoaesthesia [None]
  - Hypoaesthesia teeth [None]

NARRATIVE: CASE EVENT DATE: 20250301
